FAERS Safety Report 10148972 (Version 1)
Quarter: 2014Q2

REPORT INFORMATION
  Report Type: Spontaneous
  Country: US (occurrence: US)
  Receive Date: 20140502
  Receipt Date: 20140502
  Transmission Date: 20141212
  Serious: No
  Sender: FDA-Public Use
  Company Number: US-009507513-1404USA015321

PATIENT
  Sex: Female

DRUGS (3)
  1. SINGULAIR [Suspect]
     Dosage: UNK
     Route: 048
  2. ASMANEX TWISTHALER [Concomitant]
     Dosage: UNK
     Route: 055
  3. PRINIVIL [Concomitant]
     Dosage: UNK
     Route: 048

REACTIONS (1)
  - Drug hypersensitivity [Unknown]
